FAERS Safety Report 7142506-0 (Version None)
Quarter: 2010Q4

REPORT INFORMATION
  Report Type: 
  Country: None (occurrence: None)
  Receive Date: 20101207
  Receipt Date: 20101129
  Transmission Date: 20110411
  Serious: Yes (Hospitalization)
  Sender: FDA-Public Use
  Company Number: US-CELGENEUS-163-21880-10100331

PATIENT
  Sex: Male

DRUGS (2)
  1. REVLIMID [Suspect]
     Indication: MULTIPLE MYELOMA
     Route: 048
     Dates: start: 20100901, end: 20101101
  2. FUROSEMIDE [Concomitant]
     Route: 065

REACTIONS (8)
  - ARRHYTHMIA [None]
  - CARDIAC FAILURE CONGESTIVE [None]
  - DECREASED APPETITE [None]
  - FATIGUE [None]
  - FLUID RETENTION [None]
  - NAUSEA [None]
  - PANCYTOPENIA [None]
  - WEIGHT DECREASED [None]
